FAERS Safety Report 23364099 (Version 1)
Quarter: 2024Q1

REPORT INFORMATION
  Report Type: Spontaneous
  Country: GB (occurrence: GB)
  Receive Date: 20240104
  Receipt Date: 20240104
  Transmission Date: 20240410
  Serious: Yes (Hospitalization)
  Sender: FDA-Public Use
  Company Number: None

PATIENT
  Age: 89 Year

DRUGS (3)
  1. AMLODIPINE [Suspect]
     Active Substance: AMLODIPINE BESYLATE
     Route: 065
  2. ZOPICLONE [Suspect]
     Active Substance: ZOPICLONE
     Route: 065
  3. LOSARTAN [Suspect]
     Active Substance: LOSARTAN
     Route: 065

REACTIONS (2)
  - Hypotension [Not Recovered/Not Resolved]
  - Fall [Recovering/Resolving]
